FAERS Safety Report 8902119 (Version 2)
Quarter: 2012Q4

REPORT INFORMATION
  Report Type: 
  Country: BR (occurrence: BR)
  Receive Date: 20121112
  Receipt Date: 20121203
  Transmission Date: 20130627
  Serious: Yes (Other)
  Sender: FDA-Public Use
  Company Number: PHHY2012BR103853

PATIENT
  Sex: Female
  Weight: 80 kg

DRUGS (11)
  1. DIOVAN AMLO FIX [Suspect]
     Indication: HYPERTENSION
     Dosage: 1 DF (160/5 mg), A day
     Route: 048
     Dates: start: 20120921, end: 20121020
  2. DIOVAN AMLO FIX [Suspect]
     Dosage: 1 DF (160/5 mg), Q12H
  3. MODURETIC [Suspect]
     Indication: HYPERTENSION
     Dosage: 1 DF (50 mg), A day
     Route: 048
  4. CLOPIDOGREL [Concomitant]
     Indication: CEREBRAL CIRCULATORY FAILURE
     Dosage: 1 DF (75 mg), A day
     Route: 048
  5. ADDERA D3 [Concomitant]
     Indication: VITAMIN D DEFICIENCY
     Dosage: 10 drp, UNK
     Route: 048
  6. PURAN T4 [Concomitant]
     Indication: HYPOTHYROIDISM
     Dosage: 1 DF ,A day
     Route: 048
  7. LABIRIN [Concomitant]
     Indication: INNER EAR DISORDER
     Dosage: 2 DF (20 mg), A day
     Route: 048
     Dates: start: 201203
  8. SIMVASTATIN [Concomitant]
     Indication: BLOOD CHOLESTEROL INCREASED
     Dosage: 1 DF, A day
     Route: 048
     Dates: start: 201205
  9. ARTROLIVE [Concomitant]
     Indication: OSTEOARTHRITIS
     Dosage: 3 DF, A day
     Route: 048
  10. HYDROLYZED COLLAGEN [Concomitant]
     Indication: CHONDROPATHY
     Dosage: 1 DF, A day
     Route: 048
  11. OMEPRAZOLE [Concomitant]
     Indication: ABDOMINAL DISCOMFORT
     Dosage: 1 DF (20 mg), A day
     Route: 048

REACTIONS (8)
  - Swelling face [Recovered/Resolved]
  - Chest pain [Recovered/Resolved]
  - Oedema peripheral [Recovered/Resolved]
  - Blood pressure inadequately controlled [Recovered/Resolved]
  - Sleep disorder [Recovered/Resolved]
  - Nervousness [Recovered/Resolved]
  - Pain [Not Recovered/Not Resolved]
  - Anxiety [Recovered/Resolved]
